FAERS Safety Report 7169529-X (Version None)
Quarter: 2010Q4

REPORT INFORMATION
  Report Type: 
  Country: None (occurrence: None)
  Receive Date: 20101217
  Receipt Date: 20101209
  Transmission Date: 20110411
  Serious: Yes (Other)
  Sender: FDA-Public Use
  Company Number: JP-PFIZER INC-2010161983

PATIENT
  Age: 30 Year
  Sex: Female
  Weight: 41 kg

DRUGS (4)
  1. ZOLOFT [Suspect]
     Indication: DEPRESSIVE SYMPTOM
     Dosage: 25 MG, 1X/DAY
     Route: 048
     Dates: start: 20100409, end: 20100422
  2. ZOLOFT [Suspect]
     Dosage: 50 MG, 1X/DAY
     Dates: start: 20100423, end: 20100902
  3. ZOLOFT [Suspect]
     Dosage: 100 MG, 1X/DAY
     Dates: start: 20100903, end: 20101118
  4. ZOLOFT [Suspect]
     Dosage: 75 MG, 1X/DAY
     Dates: start: 20101119

REACTIONS (3)
  - AKATHISIA [None]
  - PARKINSONISM [None]
  - RESTLESS LEGS SYNDROME [None]
